FAERS Safety Report 6821111-7 (Version None)
Quarter: 2010Q3

REPORT INFORMATION
  Report Type: 
  Country: None (occurrence: None)
  Receive Date: 20100707
  Receipt Date: 20080326
  Transmission Date: 20110219
  Serious: No
  Sender: FDA-Public Use
  Company Number: US-PFIZER INC-2008024943

PATIENT
  Sex: Male
  Weight: 104.54 kg

DRUGS (10)
  1. ZOLOFT [Suspect]
     Indication: DEPRESSION
     Dates: start: 20020101
  2. CLONAZEPAM [Concomitant]
  3. GLYBURIDE [Concomitant]
  4. GLUCOPHAGE [Concomitant]
  5. PREVACID [Concomitant]
  6. CLARITIN [Concomitant]
  7. SOMA [Concomitant]
  8. DARVOCET [Concomitant]
  9. LYRICA [Concomitant]
  10. SYNTHROID [Concomitant]

REACTIONS (2)
  - DRUG INEFFECTIVE [None]
  - EJACULATION DISORDER [None]
